FAERS Safety Report 26211185 (Version 1)
Quarter: 2025Q4

REPORT INFORMATION
  Report Type: Spontaneous
  Country: QA (occurrence: QA)
  Receive Date: 20251230
  Receipt Date: 20251230
  Transmission Date: 20260118
  Serious: Yes (Life-Threatening, Hospitalization)
  Sender: COOPERSURGICAL
  Company Number: QA-COOPERSURGICAL, INC.-2025CPS008606

PATIENT
  Age: 39 Year
  Sex: Female

DRUGS (1)
  1. COPPER [Suspect]
     Active Substance: COPPER
     Dosage: UNK
     Route: 015

REACTIONS (8)
  - Abscess rupture [Recovered/Resolved]
  - Appendicitis [Recovered/Resolved]
  - Salpingitis [Recovered/Resolved]
  - Device dislocation [Recovered/Resolved]
  - Perforation [Recovered/Resolved]
  - Sepsis [Recovered/Resolved]
  - Pelvic inflammatory disease [Recovered/Resolved]
  - Device breakage [Recovered/Resolved]
